FAERS Safety Report 22905627 (Version 4)
Quarter: 2024Q2

REPORT INFORMATION
  Report Type: Spontaneous
  Country: US (occurrence: None)
  Receive Date: 20230905
  Receipt Date: 20240524
  Transmission Date: 20240716
  Serious: No
  Sender: FDA-Public Use
  Company Number: US-ROCHE-3413330

PATIENT
  Sex: Female

DRUGS (4)
  1. ACTEMRA [Suspect]
     Active Substance: TOCILIZUMAB
     Indication: Product used for unknown indication
     Dosage: STRENGTH:162 MG/0.9 ML
     Route: 058
     Dates: start: 20221104
  2. ACTEMRA [Suspect]
     Active Substance: TOCILIZUMAB
  3. ENBREL [Concomitant]
     Active Substance: BENZYL ALCOHOL\ETANERCEPT
  4. ORENCIA [Concomitant]
     Active Substance: ABATACEPT

REACTIONS (7)
  - Product dose omission issue [Unknown]
  - Exposure via skin contact [Unknown]
  - Device malfunction [Unknown]
  - Swelling [Unknown]
  - Wrong technique in product usage process [Unknown]
  - Needle issue [Unknown]
  - Pruritus [Unknown]

NARRATIVE: CASE EVENT DATE: 20230825
